FAERS Safety Report 14568312 (Version 6)
Quarter: 2020Q1

REPORT INFORMATION
  Report Type: Spontaneous
  Country: FR (occurrence: FR)
  Receive Date: 20180223
  Receipt Date: 20200110
  Transmission Date: 20200409
  Serious: Yes (Hospitalization, Other)
  Sender: FDA-Public Use
  Company Number: FR-009507513-1802FRA008944

PATIENT
  Age: 61 Year
  Sex: Female

DRUGS (4)
  1. ZEPATIER [Suspect]
     Active Substance: ELBASVIR\GRAZOPREVIR
     Indication: HEPATITIS C
     Dosage: 1 PER DAY (100/50 MILLIGRAM)
     Route: 048
     Dates: start: 20170418, end: 20170710
  2. ZYMAD [Concomitant]
     Active Substance: CHOLECALCIFEROL
     Indication: VITAMIN D DEFICIENCY
     Dosage: UNK
  3. ATACAND [Concomitant]
     Active Substance: CANDESARTAN CILEXETIL
     Indication: HYPERTENSION
     Dosage: 8 MG, QD
     Dates: start: 2013
  4. SOMATULINE [Concomitant]
     Active Substance: LANREOTIDE ACETATE
     Indication: ACROMEGALY
     Dosage: 120 MG, 1 EVERY 8 WEEKS
     Dates: start: 2012

REACTIONS (4)
  - Procedural intestinal perforation [Recovered/Resolved]
  - Pyelonephritis acute [Recovering/Resolving]
  - Pituitary tumour benign [Not Recovered/Not Resolved]
  - Rectal perforation [Recovered/Resolved]

NARRATIVE: CASE EVENT DATE: 20170608
